FAERS Safety Report 11505590 (Version 2)
Quarter: 2016Q1

REPORT INFORMATION
  Report Type: Spontaneous
  Country: None (occurrence: US)
  Receive Date: 20150911
  Receipt Date: 20160107
  Transmission Date: 20160525
  Serious: Yes (Hospitalization)
  Sender: FDA-Public Use
  Company Number: 1713747-2015-999305

PATIENT
  Age: 75 Year
  Sex: Male

DRUGS (1)
  1. DELFLEX [Suspect]
     Active Substance: CALCIUM CHLORIDE\DEXTROSE\MAGNESIUM CHLORIDE\SODIUM CHLORIDE\SODIUM LACTATE
     Indication: DIABETIC END STAGE RENAL DISEASE
     Route: 033

REACTIONS (4)
  - Dehydration [Unknown]
  - Metabolic encephalopathy [Unknown]
  - Staphylococcal infection [Recovering/Resolving]
  - Staphylococcal sepsis [None]

NARRATIVE: CASE EVENT DATE: 20150901
